FAERS Safety Report 17645372 (Version 1)
Quarter: 2020Q2

REPORT INFORMATION
  Report Type: Spontaneous
  Country: IN (occurrence: IN)
  Receive Date: 20200408
  Receipt Date: 20200408
  Transmission Date: 20200713
  Serious: Yes (Other)
  Sender: FDA-Public Use
  Company Number: IN-MYLANLABS-2020M1035036

PATIENT
  Age: 49 Year
  Sex: Male

DRUGS (4)
  1. CAPECITABINE. [Suspect]
     Active Substance: CAPECITABINE
     Indication: RECTAL ADENOCARCINOMA
     Route: 065
  2. FLUOROURACIL. [Suspect]
     Active Substance: FLUOROURACIL
     Indication: RECTAL ADENOCARCINOMA
     Dosage: FOLFOX REGIMEN
     Route: 065
  3. OXALIPLATIN. [Suspect]
     Active Substance: OXALIPLATIN
     Indication: RECTAL ADENOCARCINOMA
     Dosage: FOLFOX REGIMEN
     Route: 065
  4. FOLINIC ACID [Suspect]
     Active Substance: LEUCOVORIN
     Indication: RECTAL ADENOCARCINOMA
     Dosage: FOLFOX REGIMEN
     Route: 065

REACTIONS (3)
  - Granulomatous liver disease [Recovering/Resolving]
  - Venoocclusive liver disease [Recovering/Resolving]
  - Drug-induced liver injury [Recovering/Resolving]
